FAERS Safety Report 23647648 (Version 1)
Quarter: 2024Q1

REPORT INFORMATION
  Report Type: Spontaneous
  Country: CA (occurrence: CA)
  Receive Date: 20240319
  Receipt Date: 20240319
  Transmission Date: 20240410
  Serious: Yes (Hospitalization, Other)
  Sender: FDA-Public Use
  Company Number: CA-AA PHARMA INC.-2024AP003461

PATIENT
  Age: 80 Year
  Sex: Female

DRUGS (10)
  1. BUTORPHANOL [Suspect]
     Active Substance: BUTORPHANOL
     Indication: Migraine
     Dosage: UNK UNK, PRN
     Route: 065
  2. BUTORPHANOL [Suspect]
     Active Substance: BUTORPHANOL
     Indication: Pain management
  3. BUTORPHANOL [Suspect]
     Active Substance: BUTORPHANOL
     Indication: Pain
  4. BUTORPHANOL [Suspect]
     Active Substance: BUTORPHANOL
     Indication: Back pain
  5. CANDESARTAN CILEXETIL\HYDROCHLOROTHIAZIDE [Concomitant]
     Active Substance: CANDESARTAN CILEXETIL\HYDROCHLOROTHIAZIDE
     Indication: Product used for unknown indication
     Dosage: 16/12.5 MILLIGRAM
     Route: 048
  6. ROSUVASTATIN [Concomitant]
     Active Substance: ROSUVASTATIN
     Indication: Product used for unknown indication
     Dosage: 20 MILLIGRAM, QD (EVERY EVENING)
     Route: 048
  7. SIMETHICONE (DIMETHICONE) [Concomitant]
     Active Substance: DIMETHICONE
     Indication: Product used for unknown indication
     Dosage: 180 MILLIGRAM, BID AS NEEDED
     Route: 048
  8. ZINC [Concomitant]
     Active Substance: PYRITHIONE ZINC\ZINC\ZINC CHLORIDE
     Indication: Product used for unknown indication
     Dosage: 50 MILLIGRAM, QD
     Route: 048
  9. VITAMIN C [Concomitant]
     Active Substance: ASCORBIC ACID
     Indication: Product used for unknown indication
     Dosage: 1000 MILLIGRAM, QD
     Route: 048
  10. VITAMIN D NOS [Concomitant]
     Active Substance: VITAMIN D NOS
     Indication: Product used for unknown indication
     Dosage: 2000 INTERNATIONAL UNIT, QD
     Route: 048

REACTIONS (19)
  - Drug use disorder [Unknown]
  - Drug withdrawal headache [Unknown]
  - Retching [Recovered/Resolved]
  - Restless legs syndrome [Unknown]
  - Feeling guilty [Unknown]
  - Emotional distress [Unknown]
  - Wrong technique in product usage process [Unknown]
  - Incorrect dose administered [Unknown]
  - Product use issue [Unknown]
  - Intentional product use issue [Unknown]
  - Hyperaesthesia [Unknown]
  - Abdominal pain upper [Unknown]
  - Drug tolerance [Unknown]
  - Nausea [Recovered/Resolved]
  - Abnormal dreams [Recovered/Resolved]
  - Anxiety [Unknown]
  - Drug withdrawal syndrome [Recovered/Resolved]
  - Pain [Recovered/Resolved]
  - Drug dependence [Unknown]
